FAERS Safety Report 21666365 (Version 2)
Quarter: 2022Q4

REPORT INFORMATION
  Report Type: Spontaneous
  Country: JP (occurrence: JP)
  Receive Date: 20221201
  Receipt Date: 20221213
  Transmission Date: 20230113
  Serious: Yes (Death, Hospitalization, Other)
  Sender: FDA-Public Use
  Company Number: JP-MSD-M2022-50164

PATIENT
  Age: 6 Decade
  Sex: Male

DRUGS (5)
  1. KEYTRUDA [Suspect]
     Active Substance: PEMBROLIZUMAB
     Indication: Oesophageal squamous cell carcinoma stage IV
     Dosage: 200 MILLIGRAM, Q3W
     Route: 041
     Dates: start: 20220506, end: 20220802
  2. FLUOROURACIL [Concomitant]
     Active Substance: FLUOROURACIL
     Indication: Oesophageal squamous cell carcinoma stage IV
     Dosage: 800 MILLIGRAM, 5 TIMES EVERY 3 WEEKS
     Route: 041
     Dates: start: 20220506, end: 20220802
  3. CISPLATIN [Concomitant]
     Active Substance: CISPLATIN
     Indication: Oesophageal squamous cell carcinoma stage IV
     Dosage: 80 MILLIGRAM, Q3W
     Route: 041
     Dates: start: 20220506, end: 2022
  4. CISPLATIN [Concomitant]
     Active Substance: CISPLATIN
     Dosage: 64 MILLIGRAM, Q3W
     Route: 041
     Dates: start: 20220602, end: 20220802
  5. AMLODIPINE BESYLATE [Concomitant]
     Active Substance: AMLODIPINE BESYLATE
     Indication: Hypertension
     Dosage: UNK
     Route: 048

REACTIONS (7)
  - Renal impairment [Fatal]
  - Inflammation [Fatal]
  - Radiation pneumonitis [Fatal]
  - Hypoglycaemia [Fatal]
  - Malignant neoplasm progression [Fatal]
  - Pneumocystis test positive [Unknown]
  - Pulmonary mass [Unknown]

NARRATIVE: CASE EVENT DATE: 20220602
